FAERS Safety Report 9320539 (Version 4)
Quarter: 2013Q3

REPORT INFORMATION
  Report Type: Spontaneous
  Country: JP (occurrence: JP)
  Receive Date: 20130531
  Receipt Date: 20130725
  Transmission Date: 20140515
  Serious: No
  Sender: FDA-Public Use
  Company Number: JP-ROCHE-1230487

PATIENT
  Age: 62 Year
  Sex: Male

DRUGS (8)
  1. LUCENTIS [Suspect]
     Indication: AGE-RELATED MACULAR DEGENERATION
     Route: 050
     Dates: start: 20130522
  2. OLMETEC [Concomitant]
  3. VIGAMOX [Concomitant]
  4. TARIVID [Concomitant]
  5. LIDOCAINE HYDROCHLORIDE [Concomitant]
  6. ISODINE [Concomitant]
  7. MYDRIN-P [Concomitant]
  8. XYLOCAINE [Concomitant]

REACTIONS (2)
  - Rash papular [Recovered/Resolved]
  - Pruritus [Recovered/Resolved]
